FAERS Safety Report 6781525-0 (Version None)
Quarter: 2010Q2

REPORT INFORMATION
  Report Type: 
  Country: None (occurrence: None)
  Receive Date: 20100617
  Receipt Date: 20100617
  Transmission Date: 20101027
  Serious: Yes (Life-Threatening)
  Sender: FDA-Public Use
  Company Number: None

PATIENT
  Sex: Female
  Weight: 108.8633 kg

DRUGS (1)
  1. NEURONTIN [Suspect]
     Indication: NEURALGIA
     Dosage: 100 3 X DAY O
     Dates: start: 20100501, end: 20100601

REACTIONS (2)
  - CHOKING [None]
  - DYSPHAGIA [None]
